FAERS Safety Report 24632377 (Version 1)
Quarter: 2024Q4

REPORT INFORMATION
  Report Type: Spontaneous
  Country: US (occurrence: US)
  Receive Date: 20241118
  Receipt Date: 20241118
  Transmission Date: 20250114
  Serious: No
  Sender: IDORSIA PHARMACEUTICALS
  Company Number: US-IDORSIA-008689-2024-US

PATIENT
  Age: 68 Year
  Sex: Female
  Weight: 88.435 kg

DRUGS (1)
  1. QUVIVIQ [Suspect]
     Active Substance: DARIDOREXANT
     Indication: Insomnia
     Dosage: 50 MG, NIGHTLY
     Route: 048

REACTIONS (2)
  - Chest pain [Unknown]
  - Swollen tongue [Unknown]
